FAERS Safety Report 20297461 (Version 1)
Quarter: 2022Q1

REPORT INFORMATION
  Report Type: Spontaneous
  Country: US (occurrence: US)
  Receive Date: 20220105
  Receipt Date: 20220105
  Transmission Date: 20220424
  Serious: No
  Sender: FDA-Public Use
  Company Number: US-JNJFOC-20211227166

PATIENT
  Age: 6 Year
  Sex: Male

DRUGS (3)
  1. TYLENOL [Suspect]
     Active Substance: ACETAMINOPHEN
     Indication: Rhinorrhoea
     Route: 065
     Dates: start: 2021
  2. COVID-19 VACCINE [Concomitant]
     Indication: Immunisation
     Dosage: SECOND SHOT
     Route: 065
     Dates: start: 20211129
  3. VICKS ORIGINAL [Concomitant]
     Indication: Rhinorrhoea
     Route: 065
     Dates: start: 2021

REACTIONS (3)
  - Cough [Unknown]
  - Vomiting [Unknown]
  - Product use in unapproved indication [Unknown]

NARRATIVE: CASE EVENT DATE: 20210101
